FAERS Safety Report 6523341-0 (Version None)
Quarter: 2009Q4

REPORT INFORMATION
  Report Type: 
  Country: None (occurrence: None)
  Receive Date: 20091231
  Receipt Date: 20091221
  Transmission Date: 20100525
  Serious: Yes (Hospitalization)
  Sender: FDA-Public Use
  Company Number: JP-ROCHE-652333

PATIENT
  Sex: Male
  Weight: 62 kg

DRUGS (14)
  1. MYCOPHENOLATE MOFETIL [Suspect]
     Route: 048
  2. MYCOPHENOLATE MOFETIL [Suspect]
     Route: 048
     Dates: start: 20090415, end: 20090817
  3. MYCOPHENOLATE MOFETIL [Suspect]
     Route: 048
     Dates: start: 20090829
  4. NEORAL [Suspect]
     Dosage: REPORTED: DOSE WAS DIVIDED INTO 2 DOSES.
     Route: 048
     Dates: start: 20090512, end: 20090817
  5. NEORAL [Suspect]
     Dosage: REPORTED: DOSE WAS DIVIDED INTO 2 DOSES.
     Route: 048
     Dates: start: 20090829
  6. MEDROL [Suspect]
     Route: 048
     Dates: start: 20090520, end: 20090817
  7. MEDROL [Suspect]
     Route: 048
     Dates: start: 20090829
  8. TAKEPRON [Concomitant]
     Route: 048
     Dates: start: 20090325, end: 20090817
  9. TAKEPRON [Concomitant]
     Route: 048
     Dates: start: 20090829
  10. MAALOX [Concomitant]
     Route: 048
     Dates: start: 20090323, end: 20090817
  11. MAALOX [Concomitant]
     Route: 048
     Dates: start: 20090829
  12. SANDIMMUNE [Concomitant]
     Route: 041
     Dates: start: 20090818
  13. SOLU-MEDROL [Concomitant]
     Route: 041
     Dates: start: 20090818
  14. TAKEPRON [Concomitant]
     Route: 041
     Dates: start: 20090818

REACTIONS (3)
  - BILE DUCT STENOSIS [None]
  - CHOLECYSTITIS ACUTE [None]
  - PANCREATITIS ACUTE [None]
